FAERS Safety Report 8508782-4 (Version None)
Quarter: 2012Q3

REPORT INFORMATION
  Report Type: 
  Country: None (occurrence: None)
  Receive Date: 20120713
  Receipt Date: 20120706
  Transmission Date: 20120928
  Serious: Yes (Hospitalization, Other)
  Sender: FDA-Public Use
  Company Number: CA-JNJFOC-20120609382

PATIENT
  Sex: Male
  Weight: 94.5 kg

DRUGS (5)
  1. REMICADE [Suspect]
     Indication: CROHN'S DISEASE
     Route: 042
     Dates: start: 20070628
  2. QVAR 40 [Concomitant]
     Route: 055
  3. VENLAFAXINE [Concomitant]
     Route: 065
  4. CLONIDINE [Concomitant]
     Route: 065
  5. PERINDOPRIL ERBUMINE [Concomitant]
     Route: 065

REACTIONS (3)
  - COUGH [None]
  - NASAL CONGESTION [None]
  - NEPHROLITHIASIS [None]
